FAERS Safety Report 4808970-4 (Version None)
Quarter: 2005Q4

REPORT INFORMATION
  Report Type: 
  Country: None (occurrence: None)
  Receive Date: 20051025
  Receipt Date: 20050923
  Transmission Date: 20060501
  Serious: Yes (Death, Hospitalization)
  Sender: FDA-Public Use
  Company Number: JP-ROCHE-418654

PATIENT
  Age: 75 Year
  Sex: Male

DRUGS (19)
  1. PANALDINE [Suspect]
     Indication: THROMBOSIS PROPHYLAXIS
     Dosage: INDICATION ALSO REPORTED AS CORONARY STENT PLACEMENT/ ACUTE MYOCARDIAL INFARCTION.
     Route: 048
     Dates: start: 20050730, end: 20050819
  2. WARFARIN [Concomitant]
     Indication: PROPHYLAXIS
     Dosage: 2MG WERE GIVEN FROM 11 AUG - 14 AUG 2005. 3MG WERE GIVEN FROM 15 AUG - 24 AUG 2005; 2 MG WERE GIVEN+
     Route: 048
     Dates: start: 20050811, end: 20050829
  3. LIPIDIL [Concomitant]
     Indication: HYPERLIPIDAEMIA
     Route: 048
  4. ALLOPURINOL [Concomitant]
     Indication: HYPERURICAEMIA
     Route: 048
  5. DIOVAN [Concomitant]
     Indication: HYPERTENSION
     Dosage: THE PATIENT WAS ALSO TAKING DIOVAN FROM 31 JUL 2005 TO 10 SEP 2005.
     Route: 048
  6. AMARYL [Concomitant]
     Indication: DIABETES MELLITUS
     Dosage: DATES RECEIVED: 31 JUL 2005 TO 5 AUG 2005; 17 AUG 2005 TO 26 AUG 2005;
     Route: 048
     Dates: start: 20050701
  7. BASEN [Concomitant]
     Indication: DIABETES MELLITUS
     Dosage: DATES TAKEN: 17 AUG 2005 TO 26 AUG 2005.
     Route: 048
  8. BUFFERIN [Concomitant]
     Indication: ANGINA PECTORIS
     Route: 048
     Dates: start: 20050730, end: 20050730
  9. ASPIRIN [Concomitant]
     Indication: ANGINA PECTORIS
     Route: 048
     Dates: start: 20050731, end: 20050913
  10. ISOSORBIDE MONONITRATE [Concomitant]
     Indication: ANGINA PECTORIS
     Route: 048
     Dates: start: 20050731, end: 20050907
  11. ACETYLCYSTEINE [Concomitant]
     Indication: PROPHYLAXIS
     Dosage: TRADE NAME: MUCOFILIN.
     Route: 048
     Dates: start: 20050731, end: 20050801
  12. PRIMPERAN INJ [Concomitant]
     Indication: VOMITING
     Route: 042
     Dates: start: 20050801, end: 20050801
  13. DECADRON [Concomitant]
     Indication: CEREBRAL INFARCTION
     Route: 042
     Dates: start: 20050801, end: 20050807
  14. PREDOPA [Concomitant]
     Dosage: DRUG WAS STOPPED FROM 13 AUG 2005 UNTIL 18 SEP 2005 AND THEN RE-INTRODUCED.
     Route: 041
     Dates: start: 20050802
  15. LASIX [Concomitant]
     Dosage: DRUG WAS STOPPED FROM 7 AUGUST TO 18 SEPTEMBER AND THEN RE-INTRODUCED.
     Route: 042
     Dates: start: 20050802
  16. GRAMALIL [Concomitant]
     Indication: DIABETES MELLITUS
     Route: 048
     Dates: start: 20050805, end: 20050814
  17. MAGNESIUM OXIDE [Concomitant]
     Indication: CONSTIPATION
     Route: 048
     Dates: start: 20050809, end: 20050907
  18. PURSENNID [Concomitant]
     Indication: CONSTIPATION
     Route: 048
     Dates: start: 20050809, end: 20050809
  19. LECICARBON [Concomitant]
     Indication: CONSTIPATION
     Dosage: GIVEN ON THE 15 AUG AND ON THE 11 SEP 2005 ONLY.
     Route: 054
     Dates: start: 20050815, end: 20050911

REACTIONS (10)
  - CARDIAC FAILURE [None]
  - CARDIAC FAILURE CONGESTIVE [None]
  - CEREBRAL INFARCTION [None]
  - CYTOLYTIC HEPATITIS [None]
  - DRUG INTERACTION [None]
  - HEPATITIS CHOLESTATIC [None]
  - HEPATOCELLULAR DAMAGE [None]
  - JAUNDICE [None]
  - LIVER DISORDER [None]
  - SLEEP APNOEA SYNDROME [None]
